FAERS Safety Report 9634069 (Version 1)
Quarter: 2013Q4

REPORT INFORMATION
  Report Type: Spontaneous
  Country: US (occurrence: US)
  Receive Date: 20131021
  Receipt Date: 20131021
  Transmission Date: 20140711
  Serious: Yes (Hospitalization)
  Sender: FDA-Public Use
  Company Number: US-NOVOPROD-389830

PATIENT
  Age: 86 Year
  Sex: Female

DRUGS (3)
  1. NOVOLOG MIX 70/30 FLEXPEN [Suspect]
     Indication: DIABETES MELLITUS
     Dosage: DOSE UNKNOWN
     Route: 058
  2. NOVOLOG MIX 70/30 FLEXPEN [Suspect]
     Dosage: 20 U, QD
     Route: 058
     Dates: start: 201309
  3. NOVOLOG MIX 70/30 FLEXPEN [Suspect]
     Dosage: 15U AM, 15U PM
     Route: 058

REACTIONS (10)
  - Asthenia [Unknown]
  - Fall [Recovered/Resolved]
  - Head injury [Unknown]
  - Feeling abnormal [Unknown]
  - Tremor [Unknown]
  - Memory impairment [Unknown]
  - Drug dose omission [Unknown]
  - Device misuse [Unknown]
  - Incorrect product storage [Unknown]
  - Blood glucose increased [Recovering/Resolving]
